FAERS Safety Report 20665831 (Version 1)
Quarter: 2022Q2

REPORT INFORMATION
  Report Type: Spontaneous
  Country: DE (occurrence: DE)
  Receive Date: 20220402
  Receipt Date: 20220402
  Transmission Date: 20220721
  Serious: Yes (Other)
  Sender: FDA-Public Use
  Company Number: DE-AMGEN-DEUSP2022053584

PATIENT

DRUGS (5)
  1. ADALIMUMAB [Suspect]
     Active Substance: ADALIMUMAB
     Indication: Juvenile idiopathic arthritis
     Dosage: UNK
     Route: 065
  2. METHOTREXATE [Concomitant]
     Active Substance: METHOTREXATE
  3. INFLIXIMAB [Concomitant]
     Active Substance: INFLIXIMAB
  4. ABATACEPT [Concomitant]
     Active Substance: ABATACEPT
  5. GOLIMUMAB [Concomitant]
     Active Substance: GOLIMUMAB

REACTIONS (13)
  - Iris adhesions [Unknown]
  - Hypotony of eye [Unknown]
  - Ocular hypertension [Unknown]
  - Macular oedema [Unknown]
  - Glaucoma [Unknown]
  - Cataract [Unknown]
  - Optic neuritis [Unknown]
  - Iris neovascularisation [Unknown]
  - Keratopathy [Unknown]
  - Epiretinal membrane [Unknown]
  - Visual acuity reduced [Unknown]
  - Adverse event [Unknown]
  - Anterior chamber cell [Unknown]
